FAERS Safety Report 6570634-7 (Version None)
Quarter: 2010Q1

REPORT INFORMATION
  Report Type: 
  Country: None (occurrence: None)
  Receive Date: 20100204
  Receipt Date: 20100128
  Transmission Date: 20100710
  Serious: Yes (Other)
  Sender: FDA-Public Use
  Company Number: FR-PFIZER INC-2009304406

PATIENT
  Age: 58 Year
  Sex: Female

DRUGS (7)
  1. HYDROXYZINE HCL [Suspect]
     Indication: PREMEDICATION
  2. ATROPINE [Concomitant]
     Indication: PREMEDICATION
  3. SIMVASTATIN [Concomitant]
     Indication: BLOOD CHOLESTEROL INCREASED
  4. BROMAZEPAM [Concomitant]
  5. PROPOFOL [Concomitant]
     Indication: PREMEDICATION
  6. OMEPRAZOLE [Concomitant]
     Indication: PREMEDICATION
  7. ACETAMINOPHEN WITH PROPOXYPHENE HCL TAB [Concomitant]

REACTIONS (1)
  - ACUTE GENERALISED EXANTHEMATOUS PUSTULOSIS [None]
